FAERS Safety Report 9832972 (Version 2)
Quarter: 2014Q3

REPORT INFORMATION
  Report Type: Spontaneous
  Country: US (occurrence: US)
  Receive Date: 20140121
  Receipt Date: 20140725
  Transmission Date: 20150326
  Serious: Yes (Hospitalization, Other)
  Sender: FDA-Public Use
  Company Number: US-009507513-1401USA009358

PATIENT
  Sex: Female

DRUGS (1)
  1. NUVARING [Suspect]
     Active Substance: ETHINYL ESTRADIOL\ETONOGESTREL
     Indication: UTERINE MASS
     Dosage: UNK
     Route: 067
     Dates: start: 201204, end: 20120614

REACTIONS (10)
  - Pain [Not Recovered/Not Resolved]
  - Pulmonary embolism [Unknown]
  - Iron deficiency anaemia [Unknown]
  - Migraine [Not Recovered/Not Resolved]
  - Off label use [Unknown]
  - Myocardial infarction [Unknown]
  - Wound [Not Recovered/Not Resolved]
  - Asthma [Unknown]
  - Decreased appetite [Not Recovered/Not Resolved]
  - Hypothyroidism [Unknown]

NARRATIVE: CASE EVENT DATE: 20120613
